FAERS Safety Report 5804352-7 (Version None)
Quarter: 2008Q3

REPORT INFORMATION
  Report Type: 
  Country: None (occurrence: None)
  Receive Date: 20080709
  Receipt Date: 20080513
  Transmission Date: 20090109
  Serious: No
  Sender: FDA-Public Use
  Company Number: US-BAYER-200819066NA

PATIENT
  Age: 39 Year
  Sex: Female

DRUGS (7)
  1. MIRENA [Suspect]
     Indication: CONTRACEPTION
     Route: 015
     Dates: start: 20080204, end: 20080209
  2. LEXAPRO [Concomitant]
     Route: 065
  3. XANAX [Concomitant]
     Route: 065
  4. ATENOLOL [Concomitant]
     Route: 065
  5. ZYRTEC [Concomitant]
     Route: 065
  6. FLONASE [Concomitant]
     Route: 065
  7. M.V.I. [Concomitant]
     Route: 065

REACTIONS (8)
  - ABDOMINAL PAIN [None]
  - DYSMENORRHOEA [None]
  - GASTROINTESTINAL DISORDER [None]
  - GENITOURINARY TRACT INFECTION [None]
  - PAIN [None]
  - PROCEDURAL PAIN [None]
  - PROGESTERONE ABNORMAL [None]
  - VAGINAL HAEMORRHAGE [None]
